FAERS Safety Report 25396042 (Version 2)
Quarter: 2025Q4

REPORT INFORMATION
  Report Type: Report from Study
  Country: US (occurrence: None)
  Receive Date: 20250604
  Receipt Date: 20251106
  Transmission Date: 20260118
  Serious: Yes (Other)
  Sender: UCB
  Company Number: US-UCBSA-2025032708

PATIENT
  Age: 27 Year
  Weight: 33.57 kg

DRUGS (2)
  1. FINTEPLA [Suspect]
     Active Substance: FENFLURAMINE
     Indication: Product used for unknown indication
     Dosage: UNK
  2. FINTEPLA [Suspect]
     Active Substance: FENFLURAMINE
     Dosage: 2.2 MG/KG/DAY

REACTIONS (3)
  - Mitral valve incompetence [Unknown]
  - Tricuspid valve incompetence [Unknown]
  - Pericardial effusion [Unknown]
